FAERS Safety Report 23874242 (Version 2)
Quarter: 2024Q3

REPORT INFORMATION
  Report Type: Report from Study
  Country: FR (occurrence: FR)
  Receive Date: 20240520
  Receipt Date: 20240709
  Transmission Date: 20241017
  Serious: Yes (Hospitalization)
  Sender: MYLAN
  Company Number: FR-002147023-NVSC2024FR037886

PATIENT
  Sex: Female

DRUGS (3)
  1. PACLITAXEL [Suspect]
     Active Substance: PACLITAXEL
     Indication: Product used for unknown indication
     Dosage: UNK
     Route: 065
     Dates: start: 20240329
  2. KISQALI [Suspect]
     Active Substance: RIBOCICLIB
     Indication: Breast cancer metastatic
     Dosage: 600 MILLIGRAM, QD
     Route: 048
     Dates: start: 20240119, end: 20240127
  3. KISQALI [Suspect]
     Active Substance: RIBOCICLIB
     Dosage: 600 MILLIGRAM, QD
     Route: 048
     Dates: start: 20240228

REACTIONS (11)
  - Acute kidney injury [Unknown]
  - Oedema peripheral [Recovering/Resolving]
  - General physical health deterioration [Not Recovered/Not Resolved]
  - Hypercalcaemia [Recovered/Resolved]
  - Cystitis [Recovering/Resolving]
  - Hypertension [Not Recovered/Not Resolved]
  - Pain [Recovering/Resolving]
  - Nausea [Recovered/Resolved]
  - Pyrexia [Unknown]
  - Vomiting [Recovering/Resolving]
  - Anaemia [Recovering/Resolving]

NARRATIVE: CASE EVENT DATE: 20240126
